FAERS Safety Report 16835841 (Version 2)
Quarter: 2020Q2

REPORT INFORMATION
  Report Type: Report from Study
  Country: AR (occurrence: AR)
  Receive Date: 20190920
  Receipt Date: 20200410
  Transmission Date: 20200713
  Serious: Yes (Other)
  Sender: FDA-Public Use
  Company Number: AR-GLAXOSMITHKLINE-AR2019AMR169670

PATIENT
  Sex: Male

DRUGS (1)
  1. MEPOLIZUMAB [Suspect]
     Active Substance: MEPOLIZUMAB
     Indication: ASTHMA
     Dosage: UNK
     Dates: start: 20190124

REACTIONS (3)
  - Dyspnoea [Unknown]
  - Pneumonia [Unknown]
  - Nasopharyngitis [Unknown]
